FAERS Safety Report 8977459 (Version 1)
Quarter: 2012Q4

REPORT INFORMATION
  Report Type: 
  Country: JP (occurrence: JP)
  Receive Date: 20121220
  Receipt Date: 20121220
  Transmission Date: 20130627
  Serious: Yes (Hospitalization)
  Sender: FDA-Public Use
  Company Number: JP-BAXTER-2012BAX027734

PATIENT
  Age: 67 Year
  Sex: Male

DRUGS (3)
  1. DIANEAL-N PD-4 1.5 [Suspect]
     Indication: RENAL FAILURE CHRONIC
     Route: 033
     Dates: start: 20120224
  2. DIANEAL-N PD-4 1.5 [Suspect]
     Route: 033
     Dates: start: 20120224
  3. EXTRANEAL [Suspect]
     Indication: RENAL FAILURE CHRONIC
     Route: 033
     Dates: start: 20120224

REACTIONS (1)
  - Fluid retention [Recovered/Resolved]
